FAERS Safety Report 4274623-7 (Version None)
Quarter: 2004Q1

REPORT INFORMATION
  Report Type: 
  Country: None (occurrence: None)
  Receive Date: 20040120
  Receipt Date: 20040120
  Transmission Date: 20041129
  Serious: Yes (Disabling)
  Sender: FDA-Public Use
  Company Number: None

PATIENT
  Age: 49 Year
  Sex: Female
  Weight: 90.7194 kg

DRUGS (2)
  1. NARDIL [Suspect]
     Dosage: 3 X A DAY ORAL
     Route: 048
     Dates: start: 20030915, end: 20040117
  2. NARDIL [Suspect]

REACTIONS (12)
  - CONSTIPATION [None]
  - DIARRHOEA [None]
  - DISSOCIATION [None]
  - DRUG INTOLERANCE [None]
  - FEELING ABNORMAL [None]
  - FLATULENCE [None]
  - GAIT DISTURBANCE [None]
  - MALAISE [None]
  - PARAESTHESIA [None]
  - PHARMACEUTICAL PRODUCT COMPLAINT [None]
  - SOMNOLENCE [None]
  - TREMOR [None]
